FAERS Safety Report 8168580-0 (Version None)
Quarter: 2012Q1

REPORT INFORMATION
  Report Type: 
  Country: None (occurrence: None)
  Receive Date: 20120227
  Receipt Date: 20120217
  Transmission Date: 20120608
  Serious: No
  Sender: FDA-Public Use
  Company Number: US-BAYER-2012-016675

PATIENT
  Sex: Female

DRUGS (1)
  1. BEYAZ [Suspect]
     Dosage: UNK
     Route: 048
     Dates: start: 20120214

REACTIONS (3)
  - OCULAR HYPERAEMIA [None]
  - PAIN IN EXTREMITY [None]
  - HYPOAESTHESIA [None]
